FAERS Safety Report 6195748-5 (Version None)
Quarter: 2009Q2

REPORT INFORMATION
  Report Type: 
  Country: None (occurrence: None)
  Receive Date: 20090520
  Receipt Date: 20090513
  Transmission Date: 20091009
  Serious: Yes (Other)
  Sender: FDA-Public Use
  Company Number: US-TEVA-194930USA

PATIENT
  Sex: Male

DRUGS (2)
  1. CLOZAPINE [Suspect]
     Indication: SCHIZOPHRENIA
     Dosage: 900MG/DAY
     Route: 048
     Dates: start: 20080101, end: 20090430
  2. LITHIUM [Concomitant]
     Dates: end: 20090402

REACTIONS (1)
  - METABOLIC ACIDOSIS [None]
